FAERS Safety Report 19941622 (Version 1)
Quarter: 2021Q4

REPORT INFORMATION
  Report Type: Report from Study
  Country: US (occurrence: US)
  Receive Date: 20211011
  Receipt Date: 20211011
  Transmission Date: 20220304
  Serious: Yes (Other)
  Sender: FDA-Public Use
  Company Number: US-MYLANLABS-2021M1070028

PATIENT
  Age: 41 Year
  Sex: Male

DRUGS (16)
  1. MERCAPTOPURINE [Suspect]
     Active Substance: MERCAPTOPURINE
     Indication: Colitis ulcerative
     Dosage: 50 MILLIGRAM, QD (1 IN 1D)
     Route: 048
     Dates: start: 2013
  2. HUMIRA [Suspect]
     Active Substance: ADALIMUMAB
     Indication: Colitis ulcerative
     Dosage: 40 MILLIGRAM (1 IN 2WK)
     Route: 058
     Dates: start: 201503, end: 20210414
  3. AZATHIOPRINE [Suspect]
     Active Substance: AZATHIOPRINE
     Indication: Colitis ulcerative
     Dosage: 50 MILLIGRAM (1 IN 1 D)
     Route: 048
     Dates: start: 201309, end: 201311
  4. AZATHIOPRINE [Suspect]
     Active Substance: AZATHIOPRINE
     Dosage: 100 MILLIGRAM (1 IN 1 D)
     Route: 048
     Dates: start: 201311, end: 20141128
  5. AZATHIOPRINE [Suspect]
     Active Substance: AZATHIOPRINE
     Dosage: 200 MILLIGRAM (1 IN 1 D)
     Route: 048
     Dates: start: 20141229, end: 20161219
  6. AZATHIOPRINE [Suspect]
     Active Substance: AZATHIOPRINE
     Dosage: 125 MILLIGRAM (1 IN 1 D)
     Route: 048
     Dates: start: 20161220, end: 20180411
  7. AZATHIOPRINE [Suspect]
     Active Substance: AZATHIOPRINE
     Dosage: 100 MILLIGRAM (1 IN 1 D)
     Route: 048
     Dates: start: 20180411, end: 201902
  8. AZATHIOPRINE [Suspect]
     Active Substance: AZATHIOPRINE
     Dosage: 75 MILLIGRAM (1 IN 1 D)
     Route: 048
     Dates: start: 201902, end: 20210823
  9. AZATHIOPRINE [Suspect]
     Active Substance: AZATHIOPRINE
     Dosage: 150 MILLIGRAM (1 IN 1 D)
     Route: 048
     Dates: start: 20210824
  10. ASPIRIN [Concomitant]
     Active Substance: ASPIRIN
     Indication: Cardiovascular event prophylaxis
     Dosage: UNK
     Route: 048
  11. ASPIRIN [Concomitant]
     Active Substance: ASPIRIN
     Dosage: 81 MILLIGRAM (1 IN 1D)
     Route: 048
     Dates: start: 20140311
  12. TYLENOL [Concomitant]
     Active Substance: ACETAMINOPHEN
     Indication: Pain
     Dosage: UNK
     Route: 048
  13. TYLENOL [Concomitant]
     Active Substance: ACETAMINOPHEN
     Dosage: 325 MILLIGRAM (AS REQ)
     Route: 048
     Dates: start: 20140311
  14. CLARITIN [Concomitant]
     Active Substance: LORATADINE
     Indication: Seasonal allergy
     Dosage: 10 MILLIGRAM (AS REQ)
     Route: 048
     Dates: start: 201405
  15. MOMETASONE FUROATE [Concomitant]
     Active Substance: MOMETASONE FUROATE
     Indication: Seasonal allergy
     Dosage: 50 MICROGRAM (AS REQ)
     Route: 048
     Dates: start: 20141023
  16. LEVAQUIN [Concomitant]
     Active Substance: LEVOFLOXACIN
     Indication: Pneumonia
     Dosage: 750 MILLIGRAM (1 IN 1 D)
     Route: 048
     Dates: start: 20200229

REACTIONS (1)
  - Colitis ulcerative [Not Recovered/Not Resolved]

NARRATIVE: CASE EVENT DATE: 20210414
